FAERS Safety Report 15725887 (Version 1)
Quarter: 2018Q4

REPORT INFORMATION
  Report Type: Spontaneous
  Country: ZA (occurrence: ZA)
  Receive Date: 20181216
  Receipt Date: 20181216
  Transmission Date: 20190205
  Serious: Yes (Hospitalization, Other)
  Sender: FDA-Public Use
  Company Number: ZA-LUPIN PHARMACEUTICALS INC.-2018-08651

PATIENT
  Age: 53 Year
  Sex: Male

DRUGS (9)
  1. AMLOC TABLETS [Suspect]
     Active Substance: AMLODIPINE BESYLATE
     Indication: HYPERTENSION
     Dosage: 5 MG, UNK
     Route: 048
     Dates: start: 201810
  2. CALCIFEROL [ERGOCALCIFEROL] [Suspect]
     Active Substance: ERGOCALCIFEROL
     Indication: VITAMIN D DEFICIENCY
     Dosage: 50000 IU, UNK
     Route: 048
     Dates: start: 201807
  3. APIDRA SOLOSTAR [Suspect]
     Active Substance: INSULIN GLULISINE
     Indication: DIABETES MELLITUS
     Dosage: 100 IU, UNK
     Route: 065
     Dates: start: 201809
  4. ZUVAMOR [Suspect]
     Active Substance: ROSUVASTATIN
     Indication: BLOOD CHOLESTEROL ABNORMAL
     Dosage: 10 MG, UNK
     Route: 048
     Dates: start: 201810
  5. LANTUS [Suspect]
     Active Substance: INSULIN GLARGINE
     Indication: DIABETES MELLITUS
     Dosage: 100 IU, UNK
     Route: 065
     Dates: start: 201809
  6. DOPAQUEL [Suspect]
     Active Substance: QUETIAPINE
     Indication: MENTAL DISORDER
     Dosage: 200 MG, UNK
     Route: 048
     Dates: start: 201806
  7. EPILIZINE [Suspect]
     Active Substance: VALPROATE SODIUM
     Indication: EPILEPSY
     Dosage: 500 MG, UNK
     Route: 048
     Dates: start: 201806
  8. CREON [Suspect]
     Active Substance: PANCRELIPASE AMYLASE\PANCRELIPASE LIPASE\PANCRELIPASE PROTEASE
     Indication: PANCREATIC DISORDER
     Dosage: 150 MG, UNK
     Route: 048
     Dates: start: 201806
  9. BE-TABS FOLIC ACID [Suspect]
     Active Substance: FOLIC ACID
     Indication: FOLATE DEFICIENCY
     Dosage: 5 MG, UNK
     Route: 048
     Dates: start: 201806

REACTIONS (2)
  - Blood urine present [Unknown]
  - Septic shock [Unknown]

NARRATIVE: CASE EVENT DATE: 20181129
